FAERS Safety Report 4959240-5 (Version None)
Quarter: 2006Q1

REPORT INFORMATION
  Report Type: 
  Country: None (occurrence: None)
  Receive Date: 20060127
  Receipt Date: 20050906
  Transmission Date: 20060701
  Serious: Yes (Hospitalization, Other)
  Sender: FDA-Public Use
  Company Number: 2005-US-00047

PATIENT
  Age: 67 Year
  Sex: Female

DRUGS (1)
  1. CLOZAPINE [Suspect]
     Indication: BIPOLAR DISORDER
     Dosage: 75 MG, QD, ORAL
     Route: 048
     Dates: start: 19981201

REACTIONS (2)
  - PYREXIA [None]
  - SMALL INTESTINAL OBSTRUCTION [None]
